FAERS Safety Report 5967504-1 (Version None)
Quarter: 2008Q4

REPORT INFORMATION
  Report Type: 
  Country: None (occurrence: None)
  Receive Date: 20081125
  Receipt Date: 20081117
  Transmission Date: 20090506
  Serious: Yes (Hospitalization, Other)
  Sender: FDA-Public Use
  Company Number: JP-PFIZER INC-2008072219

PATIENT
  Sex: Female

DRUGS (4)
  1. FLUCAM [Suspect]
     Indication: ARTHRALGIA
     Dates: start: 20000101, end: 20051101
  2. FLUCAM [Suspect]
     Indication: OSTEOARTHRITIS
  3. CONIEL [Concomitant]
     Route: 048
     Dates: start: 19980101
  4. MICARDIS [Concomitant]
     Route: 048
     Dates: start: 19980101

REACTIONS (2)
  - SMALL INTESTINAL STENOSIS [None]
  - SMALL INTESTINE ULCER [None]
